FAERS Safety Report 8282934-3 (Version None)
Quarter: 2012Q2

REPORT INFORMATION
  Report Type: 
  Country: None (occurrence: None)
  Receive Date: 20120413
  Receipt Date: 20120330
  Transmission Date: 20120825
  Serious: Yes (Hospitalization)
  Sender: FDA-Public Use
  Company Number: DE-ROCHE-1033089

PATIENT
  Sex: Male
  Weight: 76 kg

DRUGS (19)
  1. OXALIPLATIN [Suspect]
     Indication: COLORECTAL CANCER METASTATIC
     Dosage: LAST DOSE PRIOR TO SAE 04/JAN/2012
     Route: 042
     Dates: start: 20120104
  2. AVASTIN [Suspect]
     Indication: COLORECTAL CANCER METASTATIC
     Dosage: LAST DOSE PRIOR TO SAE 04/JAN/2012
     Route: 042
     Dates: start: 20120104
  3. MORPHINE [Concomitant]
     Dates: start: 20120122
  4. LEUCOVORIN CALCIUM [Suspect]
     Indication: COLORECTAL CANCER METASTATIC
     Dosage: 2 X 394MG, LAST DOSE PRIOR TO SAE 05/JAN/2012
     Route: 042
     Dates: start: 20120104
  5. THROMBOPHOB [Concomitant]
     Dosage: 7500 IE
     Dates: start: 20120125
  6. M-LONG [Concomitant]
     Dates: start: 20120221
  7. ESCITALOPRAM [Concomitant]
  8. PANTOPRAZOLE [Concomitant]
  9. VOLTAREN [Concomitant]
  10. POLYETHYLENE GLYCOL [Concomitant]
  11. DIPYRONE TAB [Concomitant]
  12. TEPILTA [Concomitant]
     Dates: start: 20120124
  13. VALORON [Concomitant]
     Dates: start: 20120223
  14. BROMAZANIL [Concomitant]
     Dates: start: 20120213
  15. MOVIPREP [Concomitant]
     Dates: start: 20120219
  16. FLUOROURACIL [Suspect]
     Indication: COLORECTAL CANCER METASTATIC
     Dosage: 2X 1182MG LAST DOSE PRIOR TO SAE 05/JAN/2012
     Route: 042
     Dates: start: 20120104
  17. ZIENAM [Concomitant]
     Dates: start: 20120216
  18. ENOXAPARIN SODIUM [Concomitant]
     Dates: start: 20120221
  19. PANTOPRAZOLE [Concomitant]
     Dates: start: 20120121

REACTIONS (2)
  - SKIN ULCER [None]
  - EXTREMITY NECROSIS [None]
